FAERS Safety Report 8416247-3 (Version None)
Quarter: 2012Q2

REPORT INFORMATION
  Report Type: 
  Country: None (occurrence: None)
  Receive Date: 20120323
  Receipt Date: 20111220
  Transmission Date: 20120825
  Serious: Yes (Other)
  Sender: FDA-Public Use
  Company Number: 163-21880-11122743

PATIENT
  Age: 60 Year
  Sex: Female

DRUGS (8)
  1. PROPRANOLOL [Concomitant]
  2. GABAPENTIN [Concomitant]
  3. FILGRASTIM (FILGRASTIM) [Concomitant]
  4. MEDROXYPROGESTERON (MEDROXYPROGESTERONE ACETATE) [Concomitant]
  5. REVLIMID [Suspect]
     Indication: MYELODYSPLASTIC SYNDROME
     Dosage: 10 MG, 1 IN 1 D, PO 10 MG, DAILY M-F, PO
     Route: 048
     Dates: start: 20111214
  6. REVLIMID [Suspect]
     Indication: MYELODYSPLASTIC SYNDROME
     Dosage: 10 MG, 1 IN 1 D, PO 10 MG, DAILY M-F, PO
     Route: 048
     Dates: start: 20080101
  7. ESTRADIOL [Concomitant]
  8. LORAZEPAM [Concomitant]

REACTIONS (1)
  - NEUTROPENIA [None]
